FAERS Safety Report 5810955-6 (Version None)
Quarter: 2008Q3

REPORT INFORMATION
  Report Type: 
  Country: None (occurrence: None)
  Receive Date: 20080716
  Receipt Date: 20080709
  Transmission Date: 20090109
  Serious: Yes (Hospitalization)
  Sender: FDA-Public Use
  Company Number: PHHY2008JP10723

PATIENT
  Sex: Male
  Weight: 73 kg

DRUGS (14)
  1. STI571/CGP57148B T35717+CAPS [Suspect]
     Indication: GASTROINTESTINAL STROMAL TUMOUR
     Dosage: 400 MG, UNK
     Route: 048
     Dates: start: 20031125, end: 20040525
  2. STI571/CGP57148B T35717+CAPS [Suspect]
     Dosage: 400 MG, UNK
     Route: 048
     Dates: start: 20060525, end: 20061031
  3. STI571/CGP57148B T35717+CAPS [Suspect]
     Dosage: 400 MG, UNK
     Route: 048
     Dates: start: 20061206, end: 20070101
  4. STI571/CGP57148B T35717+CAPS [Suspect]
     Dosage: 300 MG, UNK
     Route: 048
     Dates: start: 20070101, end: 20071009
  5. STI571/CGP57148B T35717+CAPS [Suspect]
     Dosage: 400 MG, UNK
     Route: 048
     Dates: start: 20071010, end: 20071203
  6. STI571/CGP57148B T35717+CAPS [Suspect]
     Dosage: 400 MG, UNK
     Route: 048
     Dates: start: 20071204
  7. LASIX [Concomitant]
     Indication: FACE OEDEMA
     Dosage: 20 MG, UNK
     Route: 048
     Dates: start: 20040107
  8. LASIX [Concomitant]
     Indication: EYELID OEDEMA
     Dosage: 10 MG, UNK
     Route: 048
  9. VANCOMYCIN HCL [Concomitant]
  10. FOSMICIN [Concomitant]
  11. WARFARIN SODIUM [Concomitant]
     Indication: THROMBOSIS PROPHYLAXIS
     Dosage: UNK
     Route: 048
     Dates: start: 20031125
  12. AMARYL [Concomitant]
     Indication: DIABETES MELLITUS
     Route: 048
  13. BASEN [Concomitant]
     Indication: DIABETES MELLITUS
     Route: 048
  14. LANIRAPID [Concomitant]
     Indication: ATRIAL FIBRILLATION
     Route: 048

REACTIONS (6)
  - BLOOD CREATININE INCREASED [None]
  - BLOOD UREA INCREASED [None]
  - DIARRHOEA [None]
  - ENTEROCOLITIS [None]
  - FATIGUE [None]
  - PYREXIA [None]
